FAERS Safety Report 14953102 (Version 1)
Quarter: 2018Q2

REPORT INFORMATION
  Report Type: Spontaneous
  Country: US (occurrence: US)
  Receive Date: 20180509
  Receipt Date: 20180509
  Transmission Date: 20180711
  Serious: Yes (Hospitalization)
  Sender: FDA-Public Use
  Company Number: None

PATIENT
  Age: 64 Year
  Sex: Female

DRUGS (7)
  1. NORCO [Concomitant]
     Active Substance: ACETAMINOPHEN\HYDROCODONE BITARTRATE
  2. TRAMADOL. [Concomitant]
     Active Substance: TRAMADOL
  3. LEXAPRO [Concomitant]
     Active Substance: ESCITALOPRAM OXALATE
  4. PREVACID [Concomitant]
     Active Substance: LANSOPRAZOLE
  5. ZELBORAF [Suspect]
     Active Substance: VEMURAFENIB
     Indication: COLON CANCER
     Route: 048
  6. XANAX [Concomitant]
     Active Substance: ALPRAZOLAM
  7. ZOLPIDEM [Concomitant]
     Active Substance: ZOLPIDEM\ZOLPIDEM TARTRATE

REACTIONS (1)
  - Adverse drug reaction [None]

NARRATIVE: CASE EVENT DATE: 201805
